FAERS Safety Report 13795217 (Version 2)
Quarter: 2017Q3

REPORT INFORMATION
  Report Type: Not Available
  Country: US (occurrence: US)
  Receive Date: 20170726
  Receipt Date: 20170920
  Transmission Date: 20171127
  Serious: No
  Sender: FDA-Public Use
  Company Number: US-NEUROCRINE BIOSCIENCES INC.-2017NBI00387

PATIENT
  Age: 67 Year
  Sex: Female

DRUGS (14)
  1. LEVOTHYROXINE. [Concomitant]
     Active Substance: LEVOTHYROXINE
  2. BUPROPION. [Concomitant]
     Active Substance: BUPROPION
  3. VITAMIN C [Concomitant]
     Active Substance: ASCORBIC ACID
  4. FLUPHENAZINE [Concomitant]
     Active Substance: FLUPHENAZINE
  5. SIMVASTATIN. [Concomitant]
     Active Substance: SIMVASTATIN
  6. VITAMIN D [Concomitant]
     Active Substance: CHOLECALCIFEROL
  7. INGREZZA [Suspect]
     Active Substance: VALBENAZINE
     Indication: PRODUCT USED FOR UNKNOWN INDICATION
     Route: 048
     Dates: start: 20170511
  8. ALEVE [Concomitant]
     Active Substance: NAPROXEN SODIUM
  9. LITHIUM. [Concomitant]
     Active Substance: LITHIUM
  10. VITAMIN E [Concomitant]
     Active Substance: .ALPHA.-TOCOPHEROL
  11. NAMENDA [Concomitant]
     Active Substance: MEMANTINE HYDROCHLORIDE
  12. GLUCOSAMINE [Concomitant]
     Active Substance: GLUCOSAMINE
  13. VITAMIN B [Concomitant]
     Active Substance: VITAMIN B
  14. ZOCOR [Concomitant]
     Active Substance: SIMVASTATIN

REACTIONS (3)
  - Drug ineffective [Unknown]
  - Drooling [Unknown]
  - Tremor [Unknown]

NARRATIVE: CASE EVENT DATE: 20170517
